FAERS Safety Report 7298759-1 (Version None)
Quarter: 2011Q1

REPORT INFORMATION
  Report Type: 
  Country: None (occurrence: None)
  Receive Date: 20110217
  Receipt Date: 20110207
  Transmission Date: 20110831
  Serious: Yes (Hospitalization, Other)
  Sender: FDA-Public Use
  Company Number: US-ROCHE-731108

PATIENT
  Sex: Male
  Weight: 52.2 kg

DRUGS (2)
  1. ACCUTANE [Suspect]
     Indication: ACNE
     Route: 048
     Dates: start: 20050526, end: 20051201
  2. AMOXICILLIN [Concomitant]

REACTIONS (12)
  - COLONIC POLYP [None]
  - ARTHRALGIA [None]
  - SMALL INTESTINAL OBSTRUCTION [None]
  - IRRITABLE BOWEL SYNDROME [None]
  - BLOOD TRIGLYCERIDES INCREASED [None]
  - STRESS [None]
  - DEPRESSION [None]
  - COLITIS ULCERATIVE [None]
  - PHARYNGITIS STREPTOCOCCAL [None]
  - HAEMORRHOIDS [None]
  - NAIL INFECTION [None]
  - INFLAMMATORY BOWEL DISEASE [None]
